FAERS Safety Report 7444882-8 (Version None)
Quarter: 2011Q2

REPORT INFORMATION
  Report Type: 
  Country: None (occurrence: None)
  Receive Date: 20110429
  Receipt Date: 20110418
  Transmission Date: 20111010
  Serious: Yes (Other)
  Sender: FDA-Public Use
  Company Number: PHHY2009CA18462

PATIENT
  Sex: Female

DRUGS (7)
  1. BIZ [Concomitant]
     Dosage: UNK
  2. SANDOSTATIN LAR [Suspect]
     Indication: ACROMEGALY
     Dosage: 30 MG, QMO
     Route: 030
     Dates: start: 20041026
  3. TOPIRAMATE [Concomitant]
     Dosage: UNK
  4. SYNTHROID [Concomitant]
  5. DILANTIN [Concomitant]
     Dosage: UNK
  6. LISINOPRIL [Concomitant]
     Dosage: UNK
  7. NORTRIPTYLINE [Concomitant]
     Dosage: UNK

REACTIONS (10)
  - BLINDNESS [None]
  - BALANCE DISORDER [None]
  - URINARY TRACT INFECTION [None]
  - HEADACHE [None]
  - DYSPNOEA [None]
  - CHEST DISCOMFORT [None]
  - BLOOD GLUCOSE FLUCTUATION [None]
  - THYROID CYST [None]
  - LOSS OF CONSCIOUSNESS [None]
  - BLOOD GLUCOSE INCREASED [None]
